FAERS Safety Report 7389324-6 (Version None)
Quarter: 2011Q2

REPORT INFORMATION
  Report Type: 
  Country: None (occurrence: None)
  Receive Date: 20110401
  Receipt Date: 20101130
  Transmission Date: 20111010
  Serious: Yes (Hospitalization)
  Sender: FDA-Public Use
  Company Number: A0898919A

PATIENT
  Age: 47 Year

DRUGS (1)
  1. AVANDIA [Suspect]
     Dosage: 4MG TWICE PER DAY
     Route: 048
     Dates: start: 20051017, end: 20060101

REACTIONS (2)
  - CHEST PAIN [None]
  - CEREBROVASCULAR ACCIDENT [None]
